FAERS Safety Report 7885425-4 (Version None)
Quarter: 2011Q4

REPORT INFORMATION
  Report Type: 
  Country: None (occurrence: None)
  Receive Date: 20111102
  Receipt Date: 20111101
  Transmission Date: 20120403
  Serious: Yes (Death)
  Sender: FDA-Public Use
  Company Number: CA-GILEAD-2011-0039731

PATIENT
  Sex: Male

DRUGS (1)
  1. VIREAD [Suspect]
     Dosage: 300 MG, QD
     Route: 048
     Dates: start: 20101012

REACTIONS (1)
  - HEPATIC NEOPLASM MALIGNANT [None]
